FAERS Safety Report 4578827-5 (Version None)
Quarter: 2005Q1

REPORT INFORMATION
  Report Type: 
  Country: None (occurrence: None)
  Receive Date: 20050209
  Receipt Date: 20050209
  Transmission Date: 20050727
  Serious: Yes (Hospitalization)
  Sender: FDA-Public Use
  Company Number: None

PATIENT
  Age: 80 Year
  Sex: Female
  Weight: 66.7 kg

DRUGS (12)
  1. INDOMETRACIN [Suspect]
     Indication: GOUT
     Dosage: 50 MG PO QD PRN [1 COURSE]
     Route: 048
  2. ASPIRIN [Suspect]
     Indication: CORONARY ARTERY DISEASE
     Dosage: 81 MG PO DAILY [CHRONIC ]
     Dates: end: 20041217
  3. PROTONIX [Concomitant]
  4. NEUTRAPHOS [Concomitant]
  5. OXYCONTIN [Concomitant]
  6. LOPID [Concomitant]
  7. RESERPINE [Concomitant]
  8. OCUVITE [Concomitant]
  9. MULTI-VITAMIN [Concomitant]
  10. OSCAL [Concomitant]
  11. OCUTAB [Concomitant]
  12. LASIX [Concomitant]

REACTIONS (4)
  - DUODENAL ULCER [None]
  - GASTRIC ULCER [None]
  - HAEMATEMESIS [None]
  - OESOPHAGITIS [None]
